FAERS Safety Report 22716738 (Version 3)
Quarter: 2023Q4

REPORT INFORMATION
  Report Type: Spontaneous
  Country: AR (occurrence: AR)
  Receive Date: 20230718
  Receipt Date: 20231009
  Transmission Date: 20240110
  Serious: No
  Sender: FDA-Public Use
  Company Number: AR-PFIZER INC-PV202300122119

PATIENT
  Age: 13 Year
  Sex: Female

DRUGS (1)
  1. GENOTROPIN [Suspect]
     Active Substance: SOMATROPIN
     Indication: Foetal growth restriction
     Dosage: 1 TO 1. 4MG (7 TIMES PER WEEK)
     Dates: start: 20210813

REACTIONS (2)
  - Device mechanical issue [Unknown]
  - Off label use [Unknown]

NARRATIVE: CASE EVENT DATE: 20210813
